FAERS Safety Report 24093687 (Version 2)
Quarter: 2024Q4

REPORT INFORMATION
  Report Type: Spontaneous
  Country: US (occurrence: US)
  Receive Date: 20240715
  Receipt Date: 20241018
  Transmission Date: 20250115
  Serious: No
  Sender: ROCHE
  Company Number: US-ROCHE-3570985

PATIENT
  Age: 60 Year
  Sex: Female

DRUGS (1)
  1. XOLAIR [Suspect]
     Active Substance: OMALIZUMAB
     Indication: Idiopathic urticaria
     Dosage: XOLAIR AUTO 300MG/2ML
     Route: 058

REACTIONS (4)
  - Product quality issue [Unknown]
  - Off label use [Unknown]
  - Accidental exposure to product [Unknown]
  - No adverse event [Unknown]
